FAERS Safety Report 8609827 (Version 3)
Quarter: 2013Q3

REPORT INFORMATION
  Report Type: Report from Study
  Country: DE (occurrence: DE)
  Receive Date: 20120612
  Receipt Date: 20130716
  Transmission Date: 20140515
  Serious: Yes (Hospitalization)
  Sender: FDA-Public Use
  Company Number: DE-PFIZER INC-2012130955

PATIENT
  Age: 64 Year
  Sex: Male
  Weight: 76 kg

DRUGS (6)
  1. SUNITINIB MALATE [Suspect]
     Indication: METASTATIC RENAL CELL CARCINOMA
     Dosage: 50 MG, 1X/DAY
     Route: 048
     Dates: start: 20110429
  2. ASS [Concomitant]
     Dosage: 100 MG, 1X/DAY
     Dates: start: 20110326
  3. BISOPROLOL [Concomitant]
     Dosage: 2.5 MG, 1X/DAY
     Dates: start: 2005
  4. MIRTAZAPINE [Concomitant]
     Dosage: 30 MG, 1X/DAY
     Dates: start: 20120328
  5. TAVOR [Concomitant]
     Dosage: 1 MG, 1X/DAY
     Dates: start: 20110617
  6. ALLOPURINOL [Concomitant]

REACTIONS (1)
  - Syncope [Recovered/Resolved]
